FAERS Safety Report 4372667-8 (Version None)
Quarter: 2004Q2

REPORT INFORMATION
  Report Type: 
  Country: None (occurrence: None)
  Receive Date: 20040526
  Receipt Date: 20040511
  Transmission Date: 20050107
  Serious: Yes (Other)
  Sender: FDA-Public Use
  Company Number: 701975

PATIENT
  Age: 30 Year
  Sex: Female

DRUGS (1)
  1. AMEVIVE [Suspect]
     Indication: PSORIASIS
     Dosage: 15 MG QW IM
     Route: 030
     Dates: end: 20040401

REACTIONS (4)
  - CHEILITIS [None]
  - INFLAMMATION [None]
  - SALIVARY GLAND DISORDER [None]
  - STOMATITIS [None]
